FAERS Safety Report 4371750-0 (Version None)
Quarter: 2004Q2

REPORT INFORMATION
  Report Type: 
  Country: None (occurrence: None)
  Receive Date: 20040604
  Receipt Date: 20040604
  Transmission Date: 20050107
  Serious: Yes (Life-Threatening, Hospitalization)
  Sender: FDA-Public Use
  Company Number: None

PATIENT
  Age: 7 Year
  Sex: Male
  Weight: 23.587 kg

DRUGS (2)
  1. TOPAMAX [Suspect]
     Indication: BIPOLAR I DISORDER
     Dosage: 15 MG 3 TIMES ORAL
     Route: 048
     Dates: start: 20040507, end: 20040602
  2. DEPAKOTE [Suspect]
     Indication: BIPOLAR I DISORDER
     Dosage: 750 MG AT BEDTIME ORAL
     Route: 048
     Dates: start: 20040308, end: 20040523

REACTIONS (9)
  - AGGRESSION [None]
  - ANOREXIA [None]
  - DELUSION [None]
  - HALLUCINATION, TACTILE [None]
  - HALLUCINATION, VISUAL [None]
  - HOMICIDAL IDEATION [None]
  - OLIGODIPSIA [None]
  - PHYSICAL ASSAULT [None]
  - SUICIDAL IDEATION [None]
